FAERS Safety Report 8072101-0 (Version None)
Quarter: 2011Q4

REPORT INFORMATION
  Report Type: 
  Country: None (occurrence: None)
  Receive Date: 20111221
  Receipt Date: 20110621
  Transmission Date: 20120403
  Serious: Yes (Other)
  Sender: FDA-Public Use
  Company Number: PHHY2011US49274

PATIENT
  Age: 15 Year
  Sex: Male
  Weight: 61 kg

DRUGS (14)
  1. EXJADE [Suspect]
     Dosage: 1000 MG, QD, ORAL
     Route: 048
     Dates: start: 20100608, end: 20110501
  2. TYLENOL/W CODEINE (CODEINE, PARACETAMOL) [Concomitant]
  3. ZINC GLUCONATE (ZINC GLUCONATE) [Concomitant]
  4. FLONASE [Concomitant]
  5. FOLIC ACID [Concomitant]
  6. ACETAMINOPHEN [Concomitant]
  7. VITAMIN D [Concomitant]
  8. MIRALAX [Concomitant]
  9. ALBUTEROL [Concomitant]
  10. TOPAMAX [Concomitant]
  11. CLARITIN [Concomitant]
  12. BENADRYL (AMMONIUM CHLORIDE, DIPHENHYDRAMINE HYDROCHLORIDE, MENTHOL, S [Concomitant]
  13. DE CHLOR DM (CHLORPHENAMINE, PHENYLEPHRINE, DEXTROMETHORPHAN) [Concomitant]
  14. OXYCODONE HYDROCHLORIDE W/PARACETAMOL (OXYCODONE HYDROCHLORIDE, PARACE [Concomitant]

REACTIONS (23)
  - TREMOR [None]
  - COUGH [None]
  - SICKLE CELL ANAEMIA WITH CRISIS [None]
  - MIGRAINE [None]
  - GAIT DISTURBANCE [None]
  - PYREXIA [None]
  - TONSILLITIS [None]
  - OROPHARYNGEAL PAIN [None]
  - PAIN [None]
  - BLOOD PRESSURE SYSTOLIC INCREASED [None]
  - BLOOD CREATININE INCREASED [None]
  - INFLUENZA LIKE ILLNESS [None]
  - BLOOD PRESSURE DIASTOLIC DECREASED [None]
  - LYMPHADENOPATHY [None]
  - NERVOUS SYSTEM DISORDER [None]
  - NASAL CONGESTION [None]
  - VITAMIN D DEFICIENCY [None]
  - DYSPNOEA [None]
  - CLONUS [None]
  - GYNAECOMASTIA [None]
  - FATIGUE [None]
  - JOINT RANGE OF MOTION DECREASED [None]
  - HEADACHE [None]
